FAERS Safety Report 15978131 (Version 1)
Quarter: 2019Q1

REPORT INFORMATION
  Report Type: Spontaneous
  Country: US (occurrence: US)
  Receive Date: 20190218
  Receipt Date: 20190218
  Transmission Date: 20190418
  Serious: No
  Sender: FDA-Public Use
  Company Number: US-SA-2019SA044161

PATIENT
  Age: 61 Year
  Sex: Female
  Weight: 67.13 kg

DRUGS (4)
  1. SPIRONOLACTONE. [Concomitant]
     Active Substance: SPIRONOLACTONE
     Indication: JOINT SWELLING
  2. MAXZIDE [Concomitant]
     Active Substance: HYDROCHLOROTHIAZIDE\TRIAMTERENE
  3. DUPIXENT [Suspect]
     Active Substance: DUPILUMAB
  4. SPIRONOLACTONE. [Concomitant]
     Active Substance: SPIRONOLACTONE
     Indication: PERIPHERAL SWELLING
     Dosage: 50 MG, BID
     Route: 048
     Dates: start: 2015, end: 2015

REACTIONS (1)
  - Drug ineffective [Unknown]
